FAERS Safety Report 9297813 (Version 1)
Quarter: 2013Q2

REPORT INFORMATION
  Report Type: Spontaneous
  Country: NO (occurrence: NO)
  Receive Date: 20130520
  Receipt Date: 20130520
  Transmission Date: 20140414
  Serious: Yes (Hospitalization)
  Sender: FDA-Public Use
  Company Number: NO-JNJFOC-20130510564

PATIENT
  Sex: Male

DRUGS (11)
  1. ZYTIGA [Suspect]
     Indication: PROSTATE CANCER
     Dosage: 250 MG X 4 = 1000 MG
     Route: 048
     Dates: start: 201107
  2. PARACETAMOL [Concomitant]
     Route: 065
  3. LEVAXIN [Concomitant]
     Indication: HYPOTHYROIDISM
     Route: 048
  4. OXYNORM [Concomitant]
     Route: 048
  5. OXYCONTIN [Concomitant]
     Indication: ANALGESIC THERAPY
     Route: 048
     Dates: start: 201109
  6. PREDNISOLON [Concomitant]
     Indication: PROSTATE CANCER
     Route: 048
     Dates: start: 201107
  7. TARGINIQ [Concomitant]
     Indication: ANALGESIC THERAPY
     Route: 048
     Dates: start: 201209
  8. SOBRIL [Concomitant]
     Route: 048
  9. INSPRA [Concomitant]
     Indication: OEDEMA
     Route: 048
     Dates: start: 2012
  10. SOMAC [Concomitant]
     Route: 048
  11. RELISTOR (METHYLNALTREXONE) [Concomitant]
     Route: 058
     Dates: start: 201209

REACTIONS (1)
  - Renal cyst [Recovering/Resolving]
